FAERS Safety Report 8071507-3 (Version None)
Quarter: 2012Q1

REPORT INFORMATION
  Report Type: 
  Country: None (occurrence: None)
  Receive Date: 20120125
  Receipt Date: 20120116
  Transmission Date: 20120608
  Serious: Yes (Other)
  Sender: FDA-Public Use
  Company Number: CHPA2012US001508

PATIENT
  Sex: Female

DRUGS (3)
  1. EXCEDRIN (MIGRAINE) [Suspect]
     Dosage: UNK DF, UNK
     Route: 048
     Dates: start: 19980101
  2. EXCEDRIN (MIGRAINE) [Suspect]
     Indication: HEADACHE
     Dosage: 9-12 DF, QD
     Route: 048
  3. EXCEDRIN EXTRA STRENGTH TABLETS [Suspect]
     Indication: HEADACHE
     Dosage: UNK DF, UNK
     Route: 048
     Dates: start: 19820101, end: 19980101

REACTIONS (4)
  - BREAST CANCER [None]
  - FATIGUE [None]
  - ABDOMINAL DISCOMFORT [None]
  - MALAISE [None]
